FAERS Safety Report 5325049-6 (Version None)
Quarter: 2007Q1

REPORT INFORMATION
  Report Type: 
  Country: None (occurrence: None)
  Receive Date: 20070228
  Receipt Date: 20061016
  Transmission Date: 20070707
  Serious: Yes (Other)
  Sender: FDA-Public Use
  Company Number: 2006UW19546

PATIENT
  Age: 75 Year
  Sex: Female
  Weight: 86.182 kg

DRUGS (4)
  1. ACCOLATE [Suspect]
     Dosage: 20 MG BID PO
     Route: 048
     Dates: start: 20040101
  2. DIOVAN [Concomitant]
  3. VERAPAMIL [Concomitant]
  4. ADVAIR DISKUS 100/50 [Concomitant]

REACTIONS (2)
  - MEDICATION ERROR [None]
  - URTICARIA [None]
